FAERS Safety Report 25933759 (Version 1)
Quarter: 2025Q4

REPORT INFORMATION
  Report Type: Spontaneous
  Country: AU (occurrence: AU)
  Receive Date: 20251017
  Receipt Date: 20251017
  Transmission Date: 20260117
  Serious: Yes (Other)
  Sender: REVANCE THERAPEUTICS
  Company Number: AU-REVANCE THERAPEUTICS INC.-AU-REV-2025-000660

PATIENT

DRUGS (1)
  1. DAXIBOTULINUMTOXINA-LANM [Suspect]
     Active Substance: DAXIBOTULINUMTOXINA-LANM
     Indication: Skin wrinkling
     Dosage: 40 UNITS: FROWN, FOREHEAD, AND UPPER LATERAL ORBICULARIS OCULI AREAS
     Route: 065
     Dates: start: 20251003

REACTIONS (3)
  - Ophthalmic herpes zoster [Unknown]
  - Underdose [Unknown]
  - Off label use [Unknown]

NARRATIVE: CASE EVENT DATE: 20251003
